FAERS Safety Report 5108771-6 (Version None)
Quarter: 2006Q3

REPORT INFORMATION
  Report Type: 
  Country: None (occurrence: None)
  Receive Date: 20060918
  Receipt Date: 20060906
  Transmission Date: 20061208
  Serious: Yes (Hospitalization, Other)
  Sender: FDA-Public Use
  Company Number: 2006107739

PATIENT
  Age: 73 Year
  Sex: Female
  Weight: 84.8226 kg

DRUGS (4)
  1. NEURONTIN [Suspect]
     Indication: NEUROPATHY PERIPHERAL
     Dosage: (DAILY),
  2. CLONIDINE [Concomitant]
  3. TOPROL-XL [Concomitant]
  4. MICARDIS [Concomitant]

REACTIONS (6)
  - ABNORMAL DREAMS [None]
  - CONSTIPATION [None]
  - DRUG INEFFECTIVE [None]
  - FACIAL PAIN [None]
  - HALLUCINATION, VISUAL [None]
  - HERPES ZOSTER [None]
